FAERS Safety Report 11563531 (Version 1)
Quarter: 2015Q3

REPORT INFORMATION
  Report Type: Spontaneous
  Country: US (occurrence: US)
  Receive Date: 20150928
  Receipt Date: 20150928
  Transmission Date: 20151125
  Serious: No
  Sender: FDA-Public Use
  Company Number: US-WATSON-2014-29183

PATIENT
  Age: 75 Year
  Sex: Female

DRUGS (3)
  1. ZENPEP [Suspect]
     Active Substance: PANCRELIPASE\PANCRELIPASE AMYLASE\PANCRELIPASE LIPASE\PANCRELIPASE PROTEASE
     Indication: PANCREATIC ENZYMES ABNORMAL
     Dosage: 20000 UNITS, BID
     Route: 048
     Dates: start: 20140917
  2. ZENPEP [Suspect]
     Active Substance: PANCRELIPASE\PANCRELIPASE AMYLASE\PANCRELIPASE LIPASE\PANCRELIPASE PROTEASE
     Dosage: 20000 USP, BID
     Route: 048
     Dates: start: 2014, end: 2014
  3. ZENPEP [Suspect]
     Active Substance: PANCRELIPASE\PANCRELIPASE AMYLASE\PANCRELIPASE LIPASE\PANCRELIPASE PROTEASE
     Dosage: 20000 USP, BID
     Route: 048
     Dates: start: 2014

REACTIONS (12)
  - Enzyme abnormality [Recovered/Resolved]
  - Abdominal distension [Recovered/Resolved]
  - Constipation [Recovered/Resolved]
  - Weight decreased [Unknown]
  - Vertigo [Unknown]
  - Gastritis [Unknown]
  - Diarrhoea [Recovered/Resolved]
  - Flatulence [Recovered/Resolved]
  - Headache [Recovered/Resolved]
  - Abdominal pain upper [Recovered/Resolved]
  - Decreased appetite [Recovered/Resolved]
  - Nausea [Recovered/Resolved]

NARRATIVE: CASE EVENT DATE: 2014
